FAERS Safety Report 7585096-0 (Version None)
Quarter: 2011Q3

REPORT INFORMATION
  Report Type: 
  Country: None (occurrence: None)
  Receive Date: 20110701
  Receipt Date: 20110625
  Transmission Date: 20111222
  Serious: Yes (Hospitalization, Other)
  Sender: FDA-Public Use
  Company Number: JP-PAR PHARMACEUTICAL, INC-2011SCPR003087

PATIENT

DRUGS (2)
  1. HYDROXYUREA [Suspect]
     Dosage: 1 OR 1.5 G DAILY
     Route: 065
  2. HYDROXYUREA [Suspect]
     Indication: POLYCYTHAEMIA VERA
     Dosage: 1 G DAILY
     Route: 065

REACTIONS (2)
  - SKIN ULCER [None]
  - LEUKOCYTOCLASTIC VASCULITIS [None]
